FAERS Safety Report 18522509 (Version 2)
Quarter: 2021Q3

REPORT INFORMATION
  Report Type: Spontaneous
  Country: IT (occurrence: IT)
  Receive Date: 20201119
  Receipt Date: 20210929
  Transmission Date: 20211014
  Serious: Yes (Other)
  Sender: FDA-Public Use
  Company Number: IT-MACLEODS PHARMACEUTICALS US LTD-MAC2020029134

PATIENT

DRUGS (1)
  1. OLANZAPINE 20 MG [Suspect]
     Active Substance: OLANZAPINE
     Indication: SCHIZOPHRENIFORM DISORDER
     Dosage: 20 MILLIGRAM, QD
     Route: 065

REACTIONS (2)
  - Somnolence [Recovered/Resolved]
  - Drug hypersensitivity [Recovered/Resolved]
